FAERS Safety Report 17550826 (Version 1)
Quarter: 2020Q1

REPORT INFORMATION
  Report Type: Spontaneous
  Country: AR (occurrence: AR)
  Receive Date: 20200317
  Receipt Date: 20200317
  Transmission Date: 20200409
  Serious: Yes (Other)
  Sender: FDA-Public Use
  Company Number: AR-PFIZER INC-2020114265

PATIENT
  Age: 67 Year
  Sex: Female

DRUGS (2)
  1. IBRANCE [Suspect]
     Active Substance: PALBOCICLIB
     Indication: BREAST CANCER METASTATIC
     Dosage: 125 MG, CYCLIC (DAILY, SCHEME 3X1)
     Dates: start: 20200121, end: 2020
  2. FULVESTRANT. [Concomitant]
     Active Substance: FULVESTRANT
     Dosage: 1 DF, EVERY 15 DAYS

REACTIONS (6)
  - Glomerular filtration rate abnormal [Unknown]
  - Pain [Unknown]
  - Oral infection [Unknown]
  - Tumour marker increased [Unknown]
  - Laboratory test abnormal [Unknown]
  - Neoplasm progression [Unknown]

NARRATIVE: CASE EVENT DATE: 2020
